FAERS Safety Report 5388443-3 (Version None)
Quarter: 2007Q3

REPORT INFORMATION
  Report Type: 
  Country: None (occurrence: None)
  Receive Date: 20070716
  Receipt Date: 20070712
  Transmission Date: 20080115
  Serious: Yes (Hospitalization, Other)
  Sender: FDA-Public Use
  Company Number: SI-BRISTOL-MYERS SQUIBB COMPANY-13781554

PATIENT
  Age: 61 Year
  Sex: Male

DRUGS (3)
  1. MONOPRIL [Suspect]
     Indication: HYPERTENSION
     Route: 048
     Dates: start: 20051227, end: 20060106
  2. ASPIRIN [Concomitant]
     Dates: start: 20051227, end: 20060106
  3. GEMFIBROZIL [Concomitant]
     Dates: start: 20051227, end: 20060106

REACTIONS (1)
  - ACUTE MYELOID LEUKAEMIA [None]
